FAERS Safety Report 10026255 (Version 2)
Quarter: 2014Q2

REPORT INFORMATION
  Report Type: Report from Study
  Country: US (occurrence: US)
  Receive Date: 20140320
  Receipt Date: 20140410
  Transmission Date: 20141212
  Serious: Yes (Life-Threatening)
  Sender: FDA-Public Use
  Company Number: US-009507513-1403USA006166

PATIENT
  Sex: 0

DRUGS (2)
  1. PRINIVIL [Suspect]
     Route: 048
  2. GALETERONE [Concomitant]
     Indication: PROSTATE CANCER
     Route: 055

REACTIONS (1)
  - Angioedema [Unknown]
